FAERS Safety Report 4549791-X (Version None)
Quarter: 2005Q1

REPORT INFORMATION
  Report Type: 
  Country: None (occurrence: None)
  Receive Date: 20050111
  Receipt Date: 20041201
  Transmission Date: 20050727
  Serious: Yes (Hospitalization)
  Sender: FDA-Public Use
  Company Number: US-MERCK-0412USA00213

PATIENT
  Age: 74 Year
  Sex: Female

DRUGS (12)
  1. VIOXX [Suspect]
     Indication: ARTHRITIS
     Route: 048
     Dates: start: 20020601
  2. VIOXX [Suspect]
     Route: 048
     Dates: end: 20040801
  3. LOTREL [Concomitant]
     Route: 065
  4. LOTENSIN [Concomitant]
     Route: 065
  5. NORVASC [Concomitant]
     Route: 065
  6. PREMARIN [Concomitant]
     Route: 065
  7. [THERAPY UNSPECIFIED] [Concomitant]
     Route: 065
  8. PANTOPRAZOLE SODIUM [Concomitant]
     Route: 065
  9. ZOLOFT [Concomitant]
     Route: 065
  10. PRILOSEC [Concomitant]
     Route: 065
  11. NITRO-BID [Concomitant]
     Route: 065
  12. NITROSTAT [Concomitant]
     Route: 065

REACTIONS (7)
  - AMNESIA [None]
  - CHEST PAIN [None]
  - DYSPNOEA [None]
  - FAECAL INCONTINENCE [None]
  - FLUID RETENTION [None]
  - OEDEMA PERIPHERAL [None]
  - SYNCOPE [None]
